FAERS Safety Report 12873317 (Version 1)
Quarter: 2016Q4

REPORT INFORMATION
  Report Type: Spontaneous
  Country: US (occurrence: US)
  Receive Date: 20161021
  Receipt Date: 20161021
  Transmission Date: 20170207
  Serious: No
  Sender: FDA-Public Use
  Company Number: US-ALLERGAN-1637523US

PATIENT
  Sex: Female

DRUGS (1)
  1. FML [Suspect]
     Active Substance: FLUOROMETHOLONE
     Indication: EYE OPERATION
     Dosage: UNK
     Route: 047
     Dates: start: 201506, end: 201509

REACTIONS (1)
  - Ocular hyperaemia [Not Recovered/Not Resolved]
